FAERS Safety Report 5463035-6 (Version None)
Quarter: 2007Q3

REPORT INFORMATION
  Report Type: 
  Country: None (occurrence: None)
  Receive Date: 20070918
  Receipt Date: 20070918
  Transmission Date: 20080115
  Serious: Yes (Hospitalization)
  Sender: FDA-Public Use
  Company Number: None

PATIENT
  Sex: Male
  Weight: 91.173 kg

DRUGS (1)
  1. ENBREL [Suspect]
     Indication: ANKYLOSING SPONDYLITIS
     Dosage: 50 MG WEEKLY SQ
     Route: 058
     Dates: start: 20050624, end: 20050624

REACTIONS (2)
  - ANAPHYLACTIC REACTION [None]
  - IMMEDIATE POST-INJECTION REACTION [None]
